FAERS Safety Report 26059729 (Version 3)
Quarter: 2025Q4

REPORT INFORMATION
  Report Type: Spontaneous
  Country: US (occurrence: US)
  Receive Date: 20251118
  Receipt Date: 20251210
  Transmission Date: 20260119
  Serious: No
  Sender: KARYOPHARM THERAPEUTICS
  Company Number: US-KARYOPHARM-2025KPT100957

PATIENT

DRUGS (22)
  1. SELINEXOR [Suspect]
     Active Substance: SELINEXOR
     Indication: Plasma cell myeloma
     Dosage: 100 MG WEEKLY
     Route: 048
     Dates: start: 20251111, end: 2025
  2. ACETAMINOPHEN [Concomitant]
     Active Substance: ACETAMINOPHEN
  3. ACYCLOVIR [Concomitant]
     Active Substance: ACYCLOVIR
  4. ASPIRIN [Concomitant]
     Active Substance: ASPIRIN
  5. BASAGLAR KWIKPEN [Concomitant]
     Active Substance: INSULIN GLARGINE
  6. CARVEDILOL [Concomitant]
     Active Substance: CARVEDILOL
  7. CELECOXIB [Concomitant]
     Active Substance: CELECOXIB
  8. DEXAMETHASONE [Concomitant]
     Active Substance: DEXAMETHASONE
  9. EPINEPHRINE [Concomitant]
     Active Substance: EPINEPHRINE
  10. GABAPENTIN [Concomitant]
     Active Substance: GABAPENTIN
  11. JANUVIA [Concomitant]
     Active Substance: SITAGLIPTIN PHOSPHATE
  12. LIDOCAINE\PRILOCAINE [Concomitant]
     Active Substance: LIDOCAINE\PRILOCAINE
  13. MONTELUKAST SODIUM [Concomitant]
     Active Substance: MONTELUKAST SODIUM
  14. NOVOLOG [Concomitant]
     Active Substance: INSULIN ASPART
  15. PROCHLORPERAZINE MALEATE [Concomitant]
     Active Substance: PROCHLORPERAZINE MALEATE
  16. REVLIMID [Concomitant]
     Active Substance: LENALIDOMIDE
  17. ROSUVASTATIN CALCIUM [Concomitant]
     Active Substance: ROSUVASTATIN CALCIUM
  18. TOVIAZ [Concomitant]
     Active Substance: FESOTERODINE FUMARATE
  19. TRIAMCINOLONE ACETONIDE [Concomitant]
     Active Substance: TRIAMCINOLONE ACETONIDE
  20. VALSARTAN [Concomitant]
     Active Substance: VALSARTAN
  21. XALATAN [Concomitant]
     Active Substance: LATANOPROST
  22. WELCHOL [Concomitant]
     Active Substance: COLESEVELAM HYDROCHLORIDE

REACTIONS (3)
  - Fall [Unknown]
  - Nausea [Unknown]
  - Diarrhoea [Not Recovered/Not Resolved]

NARRATIVE: CASE EVENT DATE: 20251101
